FAERS Safety Report 15435228 (Version 1)
Quarter: 2018Q4

REPORT INFORMATION
  Report Type: Spontaneous
  Country: US (occurrence: US)
  Receive Date: 20180927
  Receipt Date: 20180927
  Transmission Date: 20190204
  Serious: No
  Sender: FDA-Public Use
  Company Number: US-INDIVIOR LIMITED-INDV-112295-2018

PATIENT
  Age: 26 Year
  Sex: Male
  Weight: 63.95 kg

DRUGS (3)
  1. SUBLOCADE [Suspect]
     Active Substance: BUPRENORPHINE
     Indication: DRUG USE DISORDER
     Dosage: 300MG,QMO
     Route: 058
     Dates: start: 20180606, end: 20180705
  2. LIDOCAINE. [Concomitant]
     Active Substance: LIDOCAINE
     Indication: INJECTION SITE PAIN
     Dosage: UNK
     Route: 065
     Dates: start: 20180705
  3. SUBLOCADE [Suspect]
     Active Substance: BUPRENORPHINE
     Dosage: 300MG, QMO
     Route: 058
     Dates: start: 20180705

REACTIONS (5)
  - Injection site extravasation [Recovered/Resolved]
  - Injection site vesicles [Unknown]
  - Injection site pallor [Recovered/Resolved]
  - Injection site erythema [Recovered/Resolved]
  - Injection site pain [Recovered/Resolved]

NARRATIVE: CASE EVENT DATE: 20180606
